FAERS Safety Report 7774591-7 (Version None)
Quarter: 2011Q3

REPORT INFORMATION
  Report Type: 
  Country: None (occurrence: None)
  Receive Date: 20110923
  Receipt Date: 20110920
  Transmission Date: 20111222
  Serious: Yes (Hospitalization, Congenital Anomaly, Other)
  Sender: FDA-Public Use
  Company Number: US-PFIZER INC-2010128179

PATIENT
  Sex: Male
  Weight: 3 kg

DRUGS (4)
  1. AUGMENTIN '125' [Concomitant]
     Dosage: 850 MG, 2X/DAY
  2. TYLENOL-500 [Concomitant]
     Dosage: UNK
  3. ZOLOFT [Suspect]
     Dosage: UNK
     Route: 064
  4. AMPICILLIN [Concomitant]
     Indication: INFECTION
     Dosage: TWO DOSES

REACTIONS (18)
  - MATERNAL EXPOSURE DURING PREGNANCY [None]
  - RESPIRATORY DISTRESS [None]
  - JAUNDICE NEONATAL [None]
  - FOETAL HEART RATE DECELERATION [None]
  - PNEUMONIA [None]
  - VIRAL TONSILLITIS [None]
  - COARCTATION OF THE AORTA [None]
  - BICUSPID AORTIC VALVE [None]
  - PATENT DUCTUS ARTERIOSUS [None]
  - ATELECTASIS [None]
  - VENTRICULAR SEPTAL DEFECT [None]
  - HEPATOMEGALY [None]
  - UPPER RESPIRATORY TRACT INFECTION [None]
  - PNEUMOTHORAX [None]
  - TACHYCARDIA [None]
  - CONJUNCTIVITIS [None]
  - DACRYOSTENOSIS CONGENITAL [None]
  - CANDIDIASIS [None]
